FAERS Safety Report 16914622 (Version 1)
Quarter: 2019Q4

REPORT INFORMATION
  Report Type: Spontaneous
  Country: FI (occurrence: FI)
  Receive Date: 20191014
  Receipt Date: 20191014
  Transmission Date: 20200122
  Serious: Yes (Other)
  Sender: FDA-Public Use
  Company Number: FI-PFIZER INC-2019442418

PATIENT
  Sex: Female

DRUGS (1)
  1. TREXAN [Suspect]
     Active Substance: METHOTREXATE SODIUM
     Indication: AUTOIMMUNE DISORDER
     Dosage: UNK
     Route: 065

REACTIONS (1)
  - Loss of control of legs [Unknown]
